FAERS Safety Report 20697892 (Version 2)
Quarter: 2023Q2

REPORT INFORMATION
  Report Type: Spontaneous
  Country: FR (occurrence: FR)
  Receive Date: 20220412
  Receipt Date: 20230612
  Transmission Date: 20230722
  Serious: Yes (Hospitalization)
  Sender: FDA-Public Use
  Company Number: FR-AFSSAPS-ST20220814

PATIENT
  Age: 58 Year
  Sex: Female

DRUGS (6)
  1. ASPIRIN [Suspect]
     Active Substance: ASPIRIN
     Indication: Dermo-hypodermitis
     Dosage: UNK
     Route: 048
     Dates: start: 202110, end: 20211022
  2. ACETAMINOPHEN [Suspect]
     Active Substance: ACETAMINOPHEN
     Indication: Dermo-hypodermitis
     Dosage: UNK
     Route: 048
     Dates: start: 202110, end: 20211022
  3. PRISTINAMYCIN [Suspect]
     Active Substance: PRISTINAMYCIN
     Indication: Dermo-hypodermitis
     Dosage: 2 GRAM, ONCE A DAY
     Route: 048
     Dates: start: 20211015, end: 20211022
  4. SIMVASTATIN [Concomitant]
     Active Substance: SIMVASTATIN
     Indication: Product used for unknown indication
     Dosage: UNK
     Route: 065
  5. PROPRANOLOL [Concomitant]
     Active Substance: PROPRANOLOL HYDROCHLORIDE
     Indication: Product used for unknown indication
     Dosage: UNK
     Route: 065
  6. PERINDOPRIL [Concomitant]
     Active Substance: PERINDOPRIL
     Indication: Product used for unknown indication
     Dosage: UNK
     Route: 065

REACTIONS (2)
  - Erythema [Recovered/Resolved]
  - Rash maculo-papular [Recovered/Resolved]

NARRATIVE: CASE EVENT DATE: 20211015
